FAERS Safety Report 21692848 (Version 1)
Quarter: 2022Q4

REPORT INFORMATION
  Report Type: Other
  Country: GB (occurrence: GB)
  Receive Date: 20221207
  Receipt Date: 20221207
  Transmission Date: 20230113
  Serious: Yes (Other)
  Sender: FDA-Public Use
  Company Number: None

PATIENT

DRUGS (4)
  1. DEXAMETHASONE [Suspect]
     Active Substance: DEXAMETHASONE
     Indication: Premedication
     Dosage: UNK
     Route: 042
     Dates: start: 20221102, end: 20221102
  2. DEXTROSE [Suspect]
     Active Substance: DEXTROSE
     Indication: Medication dilution
     Dosage: 500 ML
     Route: 042
     Dates: start: 20221102, end: 20221102
  3. ONDANSETRON [Suspect]
     Active Substance: ONDANSETRON
     Indication: Premedication
     Dosage: UNK
     Route: 042
     Dates: start: 20221102, end: 20221102
  4. OXALIPLATIN [Suspect]
     Active Substance: OXALIPLATIN
     Indication: Product used for unknown indication
     Dosage: 250 MG DILUTED IN 500 ML GLUCOSE 5%
     Route: 042
     Dates: start: 20221102, end: 20221102

REACTIONS (2)
  - Throat tightness [Recovered/Resolved]
  - Paraesthesia [Recovered/Resolved]

NARRATIVE: CASE EVENT DATE: 20221102
